FAERS Safety Report 6746399-2 (Version None)
Quarter: 2010Q2

REPORT INFORMATION
  Report Type: 
  Country: None (occurrence: None)
  Receive Date: 20100528
  Receipt Date: 20100210
  Transmission Date: 20101027
  Serious: No
  Sender: FDA-Public Use
  Company Number: A0838298A

PATIENT

DRUGS (1)
  1. FLOLAN [Suspect]
     Route: 055

REACTIONS (2)
  - ADVERSE EVENT [None]
  - OFF LABEL USE [None]
